FAERS Safety Report 12104181 (Version 1)
Quarter: 2016Q1

REPORT INFORMATION
  Report Type: Report from Study
  Country: CO (occurrence: CO)
  Receive Date: 20160223
  Receipt Date: 20160223
  Transmission Date: 20160526
  Serious: Yes (Other)
  Sender: FDA-Public Use
  Company Number: CO-ROCHE-1714779

PATIENT
  Sex: Male

DRUGS (1)
  1. DORNASE ALFA [Suspect]
     Active Substance: DORNASE ALFA
     Indication: CYSTIC FIBROSIS
     Route: 055
     Dates: start: 20090417

REACTIONS (2)
  - Mass [Unknown]
  - Cellulitis [Unknown]
